FAERS Safety Report 4757766-0 (Version None)
Quarter: 2005Q3

REPORT INFORMATION
  Report Type: 
  Country: None (occurrence: None)
  Receive Date: 20050830
  Receipt Date: 20050817
  Transmission Date: 20060218
  Serious: Yes (Life-Threatening, Hospitalization)
  Sender: FDA-Public Use
  Company Number: 2004051195

PATIENT
  Age: 43 Year
  Sex: Female
  Weight: 50 kg

DRUGS (5)
  1. RELPAX [Suspect]
     Indication: MIGRAINE
     Dosage: 20 MG (AS NECESSARY), ORAL
     Route: 048
     Dates: start: 20040628, end: 20040720
  2. MYONAL (EPERISONE HYDROCHLORIDE) [Concomitant]
  3. MEYLON (SODIUM BICARBONATE [Concomitant]
  4. VOLTAREN [Concomitant]
  5. PRIMPERAN TAB [Concomitant]

REACTIONS (7)
  - CARDIO-RESPIRATORY ARREST [None]
  - CONVULSION [None]
  - DIZZINESS [None]
  - FALL [None]
  - LACERATION [None]
  - LOSS OF CONSCIOUSNESS [None]
  - NAUSEA [None]
